FAERS Safety Report 12210728 (Version 1)
Quarter: 2016Q1

REPORT INFORMATION
  Report Type: Spontaneous
  Country: US (occurrence: US)
  Receive Date: 20160325
  Receipt Date: 20160325
  Transmission Date: 20160526
  Serious: Yes (Hospitalization, Other)
  Sender: FDA-Public Use
  Company Number: US-GLENMARK PHARMACEUTICALS INC, USA.-2016GMK022392

PATIENT
  Age: 23 Year
  Sex: Male

DRUGS (2)
  1. FLUDROCORTISONE [Concomitant]
     Active Substance: FLUDROCORTISONE
     Indication: PRODUCT USED FOR UNKNOWN INDICATION
     Dosage: 0.1 MG, BID
  2. LAMOTRIGINE. [Suspect]
     Active Substance: LAMOTRIGINE
     Indication: PRODUCT USED FOR UNKNOWN INDICATION
     Dosage: 150 MG, QD

REACTIONS (15)
  - Tachypnoea [Recovered/Resolved]
  - Generalised tonic-clonic seizure [Recovered/Resolved]
  - Anxiety [Recovered/Resolved]
  - Cardiotoxicity [Recovered/Resolved]
  - Lethargy [Recovered/Resolved]
  - Ataxia [Recovered/Resolved]
  - Neurotoxicity [Recovered/Resolved]
  - Blood pressure increased [Recovered/Resolved]
  - Intentional overdose [Unknown]
  - Heart rate increased [Recovered/Resolved]
  - Toxicity to various agents [Recovered/Resolved]
  - Coma [Recovered/Resolved]
  - Pneumonia aspiration [Recovered/Resolved]
  - Myoclonus [Recovered/Resolved]
  - Agitation [Recovered/Resolved]
